FAERS Safety Report 7778986-7 (Version None)
Quarter: 2011Q3

REPORT INFORMATION
  Report Type: 
  Country: None (occurrence: None)
  Receive Date: 20110926
  Receipt Date: 20110920
  Transmission Date: 20111222
  Serious: Yes (Other)
  Sender: FDA-Public Use
  Company Number: US-PFIZER INC-2011222953

PATIENT
  Age: 64 Year
  Sex: Male

DRUGS (1)
  1. LYRICA [Suspect]
     Dosage: UNK

REACTIONS (4)
  - ERECTILE DYSFUNCTION [None]
  - PAIN IN EXTREMITY [None]
  - NEUROPATHY PERIPHERAL [None]
  - PRURITUS [None]
